FAERS Safety Report 18692712 (Version 1)
Quarter: 2021Q1

REPORT INFORMATION
  Report Type: Spontaneous
  Country: US (occurrence: US)
  Receive Date: 20210104
  Receipt Date: 20210104
  Transmission Date: 20210419
  Serious: No
  Sender: FDA-Public Use
  Company Number: US-RECORDATI RARE DISEASES-2103834

PATIENT
  Age: 61 Year
  Sex: Female

DRUGS (1)
  1. SIGNIFOR LAR [Suspect]
     Active Substance: PASIREOTIDE PAMOATE
     Indication: PITUITARY-DEPENDENT CUSHING^S SYNDROME
     Dates: start: 20200522

REACTIONS (4)
  - Diarrhoea [Unknown]
  - Tremor [Unknown]
  - Blood glucose decreased [Unknown]
  - Constipation [Unknown]

NARRATIVE: CASE EVENT DATE: 2020
